FAERS Safety Report 18356199 (Version 1)
Quarter: 2020Q4

REPORT INFORMATION
  Report Type: Spontaneous
  Country: US (occurrence: US)
  Receive Date: 20201007
  Receipt Date: 20201007
  Transmission Date: 20210114
  Serious: Yes (Hospitalization)
  Sender: FDA-Public Use
  Company Number: US-PFIZER INC-2020386433

PATIENT
  Age: 67 Year
  Sex: Female
  Weight: 70.31 kg

DRUGS (3)
  1. CORTEF [Suspect]
     Active Substance: HYDROCORTISONE
     Indication: PITUITARY-DEPENDENT CUSHING^S SYNDROME
     Dosage: 5 MG, 2X/DAY
     Route: 048
     Dates: start: 1998
  2. CORTEF [Suspect]
     Active Substance: HYDROCORTISONE
     Indication: ADRENAL DISORDER
  3. CORTEF [Suspect]
     Active Substance: HYDROCORTISONE
     Indication: HYPOTHALAMO-PITUITARY DISORDER

REACTIONS (1)
  - Brain neoplasm [Unknown]
